FAERS Safety Report 13903794 (Version 1)
Quarter: 2017Q3

REPORT INFORMATION
  Report Type: Spontaneous
  Country: US (occurrence: US)
  Receive Date: 20170824
  Receipt Date: 20170824
  Transmission Date: 20171127
  Serious: No
  Sender: FDA-Public Use
  Company Number: US-DRREDDYS-USA/USA/17/0086261

PATIENT
  Age: 40 Year
  Sex: Female
  Weight: 95.25 kg

DRUGS (4)
  1. NORCO [Concomitant]
     Active Substance: ACETAMINOPHEN\HYDROCODONE BITARTRATE
     Indication: PRODUCT USED FOR UNKNOWN INDICATION
     Route: 065
  2. TIZANIDINE. [Suspect]
     Active Substance: TIZANIDINE
     Route: 048
     Dates: end: 20170117
  3. TIZANIDINE. [Suspect]
     Active Substance: TIZANIDINE
     Indication: MUSCLE SPASMS
     Dosage: ABOUT AN YEAR AGO
     Route: 048
     Dates: start: 20161010, end: 20170102
  4. TIZANIDINE. [Suspect]
     Active Substance: TIZANIDINE
     Route: 048
     Dates: start: 20170105

REACTIONS (9)
  - Headache [Recovered/Resolved]
  - Insomnia [Recovered/Resolved]
  - Balance disorder [Recovering/Resolving]
  - Hallucination [Recovered/Resolved]
  - Sluggishness [Recovering/Resolving]
  - Tinnitus [Recovered/Resolved]
  - Vision blurred [Recovered/Resolved]
  - Urinary tract infection [Not Recovered/Not Resolved]
  - Dizziness [Recovered/Resolved]

NARRATIVE: CASE EVENT DATE: 20161220
